FAERS Safety Report 5502781-2 (Version None)
Quarter: 2007Q4

REPORT INFORMATION
  Report Type: 
  Country: None (occurrence: None)
  Receive Date: 20071031
  Receipt Date: 20071018
  Transmission Date: 20080405
  Serious: Yes (Hospitalization, Other)
  Sender: FDA-Public Use
  Company Number: US-AMGEN-STX248659

PATIENT
  Sex: Female

DRUGS (4)
  1. ENBREL [Suspect]
     Indication: RHEUMATOID ARTHRITIS
     Route: 058
     Dates: start: 20011101
  2. ENBREL [Suspect]
     Indication: SCLERODERMA
  3. ARAVA [Concomitant]
     Route: 048
     Dates: start: 20010101
  4. LOVENOX [Concomitant]

REACTIONS (4)
  - CEREBRAL HAEMORRHAGE [None]
  - EXOSTOSIS [None]
  - PAIN IN EXTREMITY [None]
  - THROMBOSIS [None]
